FAERS Safety Report 6169939-3 (Version None)
Quarter: 2009Q2

REPORT INFORMATION
  Report Type: 
  Country: None (occurrence: None)
  Receive Date: 20090428
  Receipt Date: 20090416
  Transmission Date: 20091009
  Serious: Yes (Hospitalization)
  Sender: FDA-Public Use
  Company Number: NL-PFIZER INC-2009200938

PATIENT

DRUGS (5)
  1. ZYVOXID [Suspect]
     Indication: INFECTION
     Dosage: 600 MG, 2X/DAY
     Route: 048
     Dates: start: 20090326, end: 20090401
  2. METFORMIN [Concomitant]
     Route: 048
  3. GLICLAZIDE [Concomitant]
     Route: 048
  4. CRESTOR [Concomitant]
     Route: 048
  5. FRAXIPARINE [Concomitant]
     Dates: start: 20090327, end: 20090327

REACTIONS (3)
  - DIZZINESS [None]
  - STOMATITIS [None]
  - VOMITING [None]
